FAERS Safety Report 5334851-6 (Version None)
Quarter: 2007Q2

REPORT INFORMATION
  Report Type: 
  Country: None (occurrence: None)
  Receive Date: 20070525
  Receipt Date: 20070522
  Transmission Date: 20071010
  Serious: Yes (Hospitalization)
  Sender: FDA-Public Use
  Company Number: SE-MERCK-0705SWE00028

PATIENT
  Age: 60 Year
  Sex: Female

DRUGS (19)
  1. COZAAR [Suspect]
     Indication: CARDIAC DISORDER
     Route: 048
  2. FUROSEMIDE [Suspect]
     Indication: CARDIAC DISORDER
     Route: 048
  3. SPIRONOLACTONE [Suspect]
     Indication: CARDIAC DISORDER
     Route: 048
  4. WARFARIN SODIUM [Suspect]
     Indication: CARDIAC DISORDER
     Route: 048
     Dates: end: 20070128
  5. ASPIRIN [Suspect]
     Indication: CARDIAC DISORDER
     Route: 048
     Dates: end: 20070128
  6. OMEPRAZOLE [Concomitant]
     Route: 065
  7. ZOLPIDEM TARTRATE [Concomitant]
     Route: 065
  8. SIMVASTATIN [Concomitant]
     Route: 065
  9. FOLIC ACID [Concomitant]
     Route: 065
  10. ACETAMINOPHEN [Concomitant]
     Route: 065
  11. DIAZEPAM [Concomitant]
     Route: 065
  12. FERROUS SULFATE [Concomitant]
     Route: 065
  13. PREDNISOLONE [Concomitant]
     Route: 065
  14. PROPOXYPHENE NAPSYLATE [Concomitant]
     Route: 065
  15. ATENOLOL [Concomitant]
     Route: 065
  16. AMIODARONE HYDROCHLORIDE [Concomitant]
     Route: 065
  17. ALLOPURINOL [Concomitant]
     Route: 065
  18. CALCIUM CARBONATE AND CHOLECALCIFEROL [Concomitant]
     Route: 065
  19. IPRATROPIUM BROMIDE [Concomitant]

REACTIONS (3)
  - BLOOD CREATININE INCREASED [None]
  - EPISTAXIS [None]
  - GASTROINTESTINAL HAEMORRHAGE [None]
